FAERS Safety Report 5833716-0 (Version None)
Quarter: 2008Q3

REPORT INFORMATION
  Report Type: 
  Country: None (occurrence: None)
  Receive Date: 20080801
  Receipt Date: 20080801
  Transmission Date: 20090109
  Serious: Yes (Hospitalization)
  Sender: FDA-Public Use
  Company Number: 2008-02750

PATIENT
  Age: 67 Year
  Sex: Female
  Weight: 49.5 kg

DRUGS (5)
  1. VELCADE [Suspect]
     Indication: MULTIPLE MYELOMA
     Dosage: 1 MG/M2
     Dates: start: 20080422
  2. ZAMESTRA (TIPIFARNIB) TABLET, 100MG [Suspect]
     Indication: MULTIPLE MYELOMA
     Dosage: 200 MG, ORAL
     Route: 048
     Dates: start: 20080422, end: 20080714
  3. SIMVASTATIN [Concomitant]
  4. METHADONE HCL [Concomitant]
  5. OXYCONTIN [Concomitant]

REACTIONS (14)
  - ANAEMIA [None]
  - ANOREXIA [None]
  - ASTHENIA [None]
  - CLOSTRIDIUM DIFFICILE COLITIS [None]
  - DEHYDRATION [None]
  - FAILURE TO THRIVE [None]
  - FALL [None]
  - FATIGUE [None]
  - HYPOTENSION [None]
  - LEUKOPENIA [None]
  - RENAL FAILURE [None]
  - TRICUSPID VALVE INCOMPETENCE [None]
  - UROSEPSIS [None]
  - WHITE BLOOD CELL COUNT DECREASED [None]
